FAERS Safety Report 11379667 (Version 1)
Quarter: 2015Q3

REPORT INFORMATION
  Report Type: Spontaneous
  Country: US (occurrence: None)
  Receive Date: 20150813
  Receipt Date: 20150813
  Transmission Date: 20151125
  Serious: Yes (Disabling, Other)
  Sender: FDA-Public Use
  Company Number: None

PATIENT
  Age: 65 Year
  Sex: Male

DRUGS (5)
  1. ISENTRESS [Concomitant]
     Active Substance: RALTEGRAVIR POTASSIUM
  2. LISINOPRIL. [Concomitant]
     Active Substance: LISINOPRIL
  3. PREZISTA [Concomitant]
     Active Substance: DARUNAVIR ETHANOLATE
  4. LEVAQUIN [Suspect]
     Active Substance: LEVOFLOXACIN
     Indication: SINUSITIS
     Dates: start: 20150505, end: 20150509
  5. NORVIR [Concomitant]
     Active Substance: RITONAVIR

REACTIONS (2)
  - Tendon rupture [None]
  - Gait disturbance [None]

NARRATIVE: CASE EVENT DATE: 20150504
